FAERS Safety Report 24966089 (Version 1)
Quarter: 2025Q1

REPORT INFORMATION
  Report Type: Spontaneous
  Country: US (occurrence: None)
  Receive Date: 20250212
  Receipt Date: 20250212
  Transmission Date: 20250409
  Serious: Yes (Hospitalization)
  Sender: FDA-CTU
  Company Number: None

PATIENT
  Age: 42 Year
  Sex: Male

DRUGS (1)
  1. HYDROCHLOROTHIAZIDE\LOSARTAN POTASSIUM [Suspect]
     Active Substance: HYDROCHLOROTHIAZIDE\LOSARTAN POTASSIUM
     Indication: Hypokalaemia
     Dosage: FREQUENCY : DAILY;?
     Route: 048
     Dates: start: 20240510, end: 20240929

REACTIONS (2)
  - Hypokalaemia [None]
  - Asthenia [None]

NARRATIVE: CASE EVENT DATE: 20240930
